FAERS Safety Report 6241051-4 (Version None)
Quarter: 2009Q2

REPORT INFORMATION
  Report Type: 
  Country: None (occurrence: None)
  Receive Date: 20090619
  Receipt Date: 20090603
  Transmission Date: 20091009
  Serious: Yes (Hospitalization)
  Sender: FDA-Public Use
  Company Number: A-NJ2009-25355

PATIENT
  Age: 2 Year
  Sex: Male

DRUGS (1)
  1. TRACLEER [Suspect]
     Indication: PULMONARY HYPERTENSION
     Dosage: 20 MG, BID, ORAL
     Route: 048
     Dates: end: 20090512

REACTIONS (7)
  - CARDIAC ARREST [None]
  - HEPATIC ISCHAEMIA [None]
  - LIVER INJURY [None]
  - OFF LABEL USE [None]
  - PULMONARY HYPERTENSIVE CRISIS [None]
  - RENAL INJURY [None]
  - RENAL ISCHAEMIA [None]
